FAERS Safety Report 24071251 (Version 3)
Quarter: 2024Q3

REPORT INFORMATION
  Report Type: Report from Study
  Country: IT (occurrence: IT)
  Receive Date: 20240710
  Receipt Date: 20240710
  Transmission Date: 20241016
  Serious: No
  Sender: ROCHE
  Company Number: IT-ROCHE-3553117

PATIENT
  Age: 65 Year
  Sex: Male

DRUGS (2)
  1. ALECTINIB [Suspect]
     Active Substance: ALECTINIB
     Indication: Lung cancer metastatic
     Route: 048
     Dates: start: 20191115
  2. ALECTINIB [Suspect]
     Active Substance: ALECTINIB
     Route: 048
     Dates: start: 20230320

REACTIONS (2)
  - Oedema peripheral [Not Recovered/Not Resolved]
  - Skin hyperpigmentation [Not Recovered/Not Resolved]

NARRATIVE: CASE EVENT DATE: 20230411
